FAERS Safety Report 15741652 (Version 2)
Quarter: 2019Q1

REPORT INFORMATION
  Report Type: Spontaneous
  Country: US (occurrence: US)
  Receive Date: 20181219
  Receipt Date: 20190211
  Transmission Date: 20190417
  Serious: No
  Sender: FDA-Public Use
  Company Number: US-PFIZER INC-2018517494

PATIENT
  Age: 56 Year
  Sex: Male

DRUGS (2)
  1. PRAZOSIN HCL [Suspect]
     Active Substance: PRAZOSIN HYDROCHLORIDE
     Indication: POST-TRAUMATIC STRESS DISORDER
     Dosage: 1 MG, 1X/DAY(1 MG PO BED)
     Route: 048
     Dates: start: 20160307
  2. PRAZOSIN HCL [Suspect]
     Active Substance: PRAZOSIN HYDROCHLORIDE
     Indication: ABNORMAL DREAMS

REACTIONS (2)
  - Drug hypersensitivity [Unknown]
  - Dizziness [Unknown]
